FAERS Safety Report 19550157 (Version 1)
Quarter: 2021Q3

REPORT INFORMATION
  Report Type: Spontaneous
  Country: US (occurrence: US)
  Receive Date: 20210715
  Receipt Date: 20210715
  Transmission Date: 20211014
  Serious: Yes (Life-Threatening, Hospitalization, Disabling)
  Sender: FDA-Public Use
  Company Number: None

PATIENT
  Age: 83 Year
  Sex: Female
  Weight: 68.04 kg

DRUGS (14)
  1. ASPIRIN. [Concomitant]
     Active Substance: ASPIRIN
  2. TYLENOL [Concomitant]
     Active Substance: ACETAMINOPHEN
  3. ZOFRAN [Concomitant]
     Active Substance: ONDANSETRON HYDROCHLORIDE
  4. TIMOLOL. [Concomitant]
     Active Substance: TIMOLOL
  5. METOPROL SUC [Concomitant]
  6. ELIQUIS [Concomitant]
     Active Substance: APIXABAN
  7. PRESER VISION A RED 2 [Concomitant]
  8. ATORVASTATIN [Concomitant]
     Active Substance: ATORVASTATIN
  9. PANTOPRAZOLE [Concomitant]
     Active Substance: PANTOPRAZOLE
  10. POT CHLORIDE [Concomitant]
     Active Substance: POTASSIUM CHLORIDE
  11. LASIX [Concomitant]
     Active Substance: FUROSEMIDE
  12. MECLIZINE [Concomitant]
     Active Substance: MECLIZINE HYDROCHLORIDE
  13. AMIODARONE [Suspect]
     Active Substance: AMIODARONE
     Indication: HEART RATE INCREASED
     Dosage: ?          QUANTITY:1 DF DOSAGE FORM;?
     Route: 048
     Dates: start: 201807, end: 202009
  14. XANAX [Concomitant]
     Active Substance: ALPRAZOLAM

REACTIONS (12)
  - Alopecia [None]
  - Iron deficiency anaemia [None]
  - Cough [None]
  - Fall [None]
  - Weight decreased [None]
  - Aptyalism [None]
  - Hepatic enzyme increased [None]
  - Decreased appetite [None]
  - White blood cell count increased [None]
  - Asthenia [None]
  - Dysstasia [None]
  - Eye disorder [None]
